FAERS Safety Report 21407133 (Version 1)
Quarter: 2022Q4

REPORT INFORMATION
  Report Type: Spontaneous
  Country: CA (occurrence: CA)
  Receive Date: 20221004
  Receipt Date: 20221004
  Transmission Date: 20230113
  Serious: Yes (Death, Hospitalization)
  Sender: FDA-Public Use
  Company Number: None

PATIENT
  Age: 70 Year
  Sex: Male
  Weight: 67 kg

DRUGS (19)
  1. CARBOPLATIN [Suspect]
     Active Substance: CARBOPLATIN
     Indication: Lung neoplasm malignant
     Dosage: CYCLICAL
     Route: 042
  2. ETOPOSIDE [Suspect]
     Active Substance: ETOPOSIDE
     Indication: Lung neoplasm malignant
  3. ALBUMIN HUMAN [Concomitant]
     Active Substance: ALBUMIN HUMAN
     Route: 042
  4. AMLODIPINE [Concomitant]
     Active Substance: AMLODIPINE BESYLATE
  5. CEFUROXIME [Concomitant]
     Active Substance: CEFUROXIME
  6. DEXAMETHASONE [Concomitant]
     Active Substance: DEXAMETHASONE
     Route: 014
  7. DOMPERIDONE [Concomitant]
     Active Substance: DOMPERIDONE
  8. ENOXAPARIN [Concomitant]
     Active Substance: ENOXAPARIN
  9. FUROSEMIDE [Concomitant]
     Active Substance: FUROSEMIDE
  10. HYDROMORPHONE HCL [Concomitant]
     Active Substance: HYDROMORPHONE HYDROCHLORIDE
  11. LACTULOSE [Concomitant]
     Active Substance: LACTULOSE
  12. LORAZEPAM [Concomitant]
     Active Substance: LORAZEPAM
  13. METOCLOPRAMIDE [Concomitant]
     Active Substance: METOCLOPRAMIDE
  14. OLANZAPINE [Concomitant]
     Active Substance: OLANZAPINE
  15. ONDANSETRON [Concomitant]
     Active Substance: ONDANSETRON
  16. PANTOPRAZOLE [Concomitant]
     Active Substance: PANTOPRAZOLE
     Dosage: POWDER FOR SOLUTION
     Route: 042
  17. POTASSIUM [Concomitant]
     Active Substance: POTASSIUM
     Route: 042
  18. PROCHLORPERAZINE [Concomitant]
     Active Substance: PROCHLORPERAZINE
  19. TAMSULOSIN [Concomitant]
     Active Substance: TAMSULOSIN

REACTIONS (2)
  - Febrile neutropenia [Fatal]
  - Septic shock [Fatal]
